FAERS Safety Report 9191296 (Version 1)
Quarter: 2013Q1

REPORT INFORMATION
  Report Type: Spontaneous
  Country: BR (occurrence: BR)
  Receive Date: 20130326
  Receipt Date: 20130326
  Transmission Date: 20140127
  Serious: Yes (Other)
  Sender: FDA-Public Use
  Company Number: PHHY2013BR028434

PATIENT
  Sex: Male

DRUGS (9)
  1. PAMELOR [Suspect]
  2. CLONAZEPAM [Suspect]
  3. DIAZEPAM [Suspect]
  4. RIVOTRIL [Suspect]
  5. BROMAZEPAM [Suspect]
  6. PAROXETINE [Suspect]
  7. AMITRIPTYLINE [Suspect]
  8. PRISTIQ [Suspect]
  9. LEXAPRO [Suspect]

REACTIONS (6)
  - Post-traumatic stress disorder [Not Recovered/Not Resolved]
  - Sedation [Not Recovered/Not Resolved]
  - Panic disorder [Not Recovered/Not Resolved]
  - Depression [Not Recovered/Not Resolved]
  - Decreased interest [Not Recovered/Not Resolved]
  - Abnormal behaviour [Not Recovered/Not Resolved]
